FAERS Safety Report 5375655-8 (Version None)
Quarter: 2007Q2

REPORT INFORMATION
  Report Type: 
  Country: None (occurrence: None)
  Receive Date: 20070629
  Receipt Date: 20070621
  Transmission Date: 20071010
  Serious: Yes (Other)
  Sender: FDA-Public Use
  Company Number: US-PFIZER INC-2007052181

PATIENT
  Sex: Male
  Weight: 99.8 kg

DRUGS (8)
  1. ZOLOFT [Suspect]
     Indication: OBSESSIVE-COMPULSIVE DISORDER
  2. ZOLOFT [Suspect]
     Indication: ANXIETY
  3. ZOLOFT [Suspect]
     Indication: DEPRESSION
  4. WELLBUTRIN [Concomitant]
  5. KLONOPIN [Concomitant]
     Dosage: DAILY DOSE:1MG
  6. SYNTHROID [Concomitant]
  7. LISINOPRIL [Concomitant]
     Indication: BLOOD PRESSURE
  8. LIPITOR [Concomitant]

REACTIONS (2)
  - DIABETES MELLITUS [None]
  - HEADACHE [None]
